FAERS Safety Report 8067424-5 (Version None)
Quarter: 2012Q1

REPORT INFORMATION
  Report Type: 
  Country: None (occurrence: None)
  Receive Date: 20120124
  Receipt Date: 20120120
  Transmission Date: 20120608
  Serious: Yes (Life-Threatening, Hospitalization)
  Sender: FDA-Public Use
  Company Number: DE-ASTRAZENECA-2011SE70116

PATIENT
  Age: 15 Year
  Sex: Female
  Weight: 57 kg

DRUGS (6)
  1. SEROQUEL [Suspect]
     Indication: DEPRESSION
     Route: 048
     Dates: start: 20111016, end: 20111103
  2. DIPIPERON [Concomitant]
     Indication: AGGRESSION
     Route: 048
     Dates: start: 20111103, end: 20111106
  3. SEROQUEL [Suspect]
     Indication: ANXIETY
     Route: 048
     Dates: start: 20111016, end: 20111103
  4. SEROQUEL [Suspect]
     Indication: ANTISOCIAL PERSONALITY DISORDER
     Route: 048
     Dates: start: 20111016, end: 20111103
  5. AKINETON [Concomitant]
     Indication: EXTRAPYRAMIDAL DISORDER
  6. SEROQUEL [Suspect]
     Indication: POST-TRAUMATIC STRESS DISORDER
     Route: 048
     Dates: start: 20111016, end: 20111103

REACTIONS (6)
  - HALLUCINATION, VISUAL [None]
  - INSOMNIA [None]
  - RESTLESSNESS [None]
  - DELIRIUM [None]
  - DISORIENTATION [None]
  - OFF LABEL USE [None]
